FAERS Safety Report 21434757 (Version 2)
Quarter: 2022Q4

REPORT INFORMATION
  Report Type: Spontaneous
  Country: US (occurrence: US)
  Receive Date: 20221010
  Receipt Date: 20221014
  Transmission Date: 20230112
  Serious: Yes (Other)
  Sender: FDA-Public Use
  Company Number: US-KYOWAKIRIN-2022BKK015667

PATIENT

DRUGS (1)
  1. CRYSVITA [Suspect]
     Active Substance: BUROSUMAB-TWZA
     Indication: Hereditary hypophosphataemic rickets
     Dosage: 60 MG/ML, 1X/4 WEEKS
     Route: 058
     Dates: start: 20190813

REACTIONS (9)
  - Osteomyelitis [Unknown]
  - Joint dislocation [Unknown]
  - Ear infection [Unknown]
  - Arthropathy [Unknown]
  - Arthralgia [Unknown]
  - Fatigue [Unknown]
  - Fatigue [Unknown]
  - Pain [Unknown]
  - Endodontic procedure [Unknown]

NARRATIVE: CASE EVENT DATE: 20200901
